FAERS Safety Report 13048949 (Version 3)
Quarter: 2017Q1

REPORT INFORMATION
  Report Type: Report from Study
  Country: US (occurrence: US)
  Receive Date: 20161221
  Receipt Date: 20170130
  Transmission Date: 20170428
  Serious: No
  Sender: FDA-Public Use
  Company Number: US-AMGEN-USASL2016174282

PATIENT
  Age: 64 Year
  Sex: Female

DRUGS (1)
  1. ENBREL [Suspect]
     Active Substance: ETANERCEPT
     Indication: RHEUMATOID ARTHRITIS
     Dosage: 50 MG, QWK
     Route: 065
     Dates: start: 2016, end: 20161209

REACTIONS (5)
  - Injection site warmth [Unknown]
  - Injection site pain [Unknown]
  - Injection site erythema [Unknown]
  - Headache [Unknown]
  - Injection site pruritus [Unknown]

NARRATIVE: CASE EVENT DATE: 2016
